FAERS Safety Report 21166134 (Version 1)
Quarter: 2022Q3

REPORT INFORMATION
  Report Type: Spontaneous
  Country: US (occurrence: None)
  Receive Date: 20220802
  Receipt Date: 20220802
  Transmission Date: 20221027
  Serious: Yes (Other)
  Sender: FDA-Public Use
  Company Number: None

PATIENT
  Age: 71 Year
  Sex: Female
  Weight: 65.52 kg

DRUGS (1)
  1. LORAZEPAM [Suspect]
     Active Substance: LORAZEPAM
     Dosage: FREQUENCY : 3 TIMES A DAY;?
     Route: 048

REACTIONS (4)
  - Agitation [None]
  - Delirium [None]
  - Gait disturbance [None]
  - Dysmorphism [None]

NARRATIVE: CASE EVENT DATE: 20220418
